FAERS Safety Report 25010194 (Version 2)
Quarter: 2025Q1

REPORT INFORMATION
  Report Type: Report from Study
  Country: GB (occurrence: GB)
  Receive Date: 20250225
  Receipt Date: 20250310
  Transmission Date: 20250409
  Serious: Yes (Other)
  Sender: BAYER HEALTHCARE PHARMACEUTICALS INC.
  Company Number: GB-BAYER-2025A021551

PATIENT
  Age: 74 Year
  Sex: Male

DRUGS (6)
  1. NUBEQA [Suspect]
     Active Substance: DAROLUTAMIDE
     Indication: Hormone-refractory prostate cancer
     Dosage: 600 MG, BID
     Dates: start: 20240629, end: 20250213
  2. NUBEQA [Suspect]
     Active Substance: DAROLUTAMIDE
     Indication: Hormone-refractory prostate cancer
     Dosage: 600 MG, BID
     Dates: start: 20250305
  3. ATORVASTATIN [Suspect]
     Active Substance: ATORVASTATIN
  4. CLOPIDOGREL [Concomitant]
     Active Substance: CLOPIDOGREL BISULFATE
  5. SIMVASTATIN [Concomitant]
     Active Substance: SIMVASTATIN
  6. GOSERELIN [Concomitant]
     Active Substance: GOSERELIN

REACTIONS (5)
  - Transient ischaemic attack [Not Recovered/Not Resolved]
  - Hypertension [Recovering/Resolving]
  - Aphasia [Not Recovered/Not Resolved]
  - Head discomfort [Recovered/Resolved]
  - Labelled drug-drug interaction issue [Not Recovered/Not Resolved]

NARRATIVE: CASE EVENT DATE: 20250101
